FAERS Safety Report 24888116 (Version 1)
Quarter: 2025Q1

REPORT INFORMATION
  Report Type: Spontaneous
  Country: US (occurrence: US)
  Receive Date: 20250127
  Receipt Date: 20250127
  Transmission Date: 20250409
  Serious: Yes (Other)
  Sender: JOHNSON AND JOHNSON
  Company Number: US-JNJFOC-20241253313

PATIENT
  Age: 86 Year
  Sex: Male
  Weight: 69 kg

DRUGS (4)
  1. LAZCLUZE [Suspect]
     Active Substance: LAZERTINIB
     Indication: Lung carcinoma cell type unspecified recurrent
     Route: 048
     Dates: start: 20241204
  2. RYBREVANT [Suspect]
     Active Substance: AMIVANTAMAB-VMJW
     Indication: Lung carcinoma cell type unspecified recurrent
  3. ALUMINUM HYDROXIDE\MAGNESIUM CARBONATE [Concomitant]
     Active Substance: ALUMINUM HYDROXIDE\MAGNESIUM CARBONATE
  4. ACRIVASTINE [Concomitant]
     Active Substance: ACRIVASTINE

REACTIONS (4)
  - Infusion related reaction [Recovered/Resolved]
  - Heart rate decreased [Recovered/Resolved]
  - Presyncope [Recovered/Resolved]
  - Constipation [Not Recovered/Not Resolved]
